FAERS Safety Report 12421525 (Version 1)
Quarter: 2016Q2

REPORT INFORMATION
  Report Type: Spontaneous
  Country: US (occurrence: US)
  Receive Date: 20160531
  Receipt Date: 20160531
  Transmission Date: 20160815
  Serious: Yes (Other)
  Sender: FDA-Public Use
  Company Number: US-MYLANLABS-2016M1021884

PATIENT

DRUGS (2)
  1. TAPAZOLE [Suspect]
     Active Substance: METHIMAZOLE
     Indication: THYROID DISORDER
     Dosage: 7.5 MG, BID
     Route: 048
     Dates: start: 201502, end: 20150608
  2. METHIMAZOLE. [Suspect]
     Active Substance: METHIMAZOLE
     Indication: THYROID DISORDER
     Dosage: 7.5 MG, BID
     Route: 048
     Dates: start: 201505, end: 20150608

REACTIONS (5)
  - Dyspnoea [Recovered/Resolved]
  - Hallucination [Recovered/Resolved]
  - Blood pressure increased [Recovered/Resolved]
  - Throat tightness [Recovered/Resolved]
  - Formication [Recovered/Resolved]

NARRATIVE: CASE EVENT DATE: 201506
